FAERS Safety Report 8919385 (Version 2)
Quarter: 2013Q1

REPORT INFORMATION
  Report Type: Spontaneous
  Country: US (occurrence: US)
  Receive Date: 20121121
  Receipt Date: 20130314
  Transmission Date: 20140127
  Serious: Yes (Hospitalization)
  Sender: FDA-Public Use
  Company Number: US-BAYER-2012-119490

PATIENT
  Age: 26 Year
  Sex: Female
  Weight: 56.69 kg

DRUGS (2)
  1. YASMIN [Suspect]
     Indication: CONTRACEPTION
     Dosage: UNK
     Dates: start: 2001, end: 200910
  2. OCELLA [Suspect]
     Dosage: UNK
     Dates: start: 2001, end: 200910

REACTIONS (8)
  - Pulmonary embolism [None]
  - Deep vein thrombosis [None]
  - Injury [None]
  - Pain [None]
  - General physical health deterioration [None]
  - Cardiac disorder [None]
  - Arrhythmia [None]
  - Heart rate abnormal [None]
